FAERS Safety Report 20346245 (Version 1)
Quarter: 2022Q1

REPORT INFORMATION
  Report Type: Spontaneous
  Country: US (occurrence: US)
  Receive Date: 20220118
  Receipt Date: 20220118
  Transmission Date: 20220423
  Serious: Yes (Other)
  Sender: FDA-Public Use
  Company Number: US-TARO-2022TAR00020

PATIENT

DRUGS (3)
  1. CETIRIZINE HCL [Suspect]
     Active Substance: CETIRIZINE HYDROCHLORIDE
     Indication: Seasonal allergy
     Dosage: 2.5 MG, BID, PEG TUBE
     Route: 065
  2. Kirkland brand [Concomitant]
     Indication: Seasonal allergy
     Dosage: A COUPLE YEARS AGO
     Route: 065
  3. Kirkland brand [Concomitant]
     Dosage: UNK
     Route: 065

REACTIONS (1)
  - Seizure [Recovering/Resolving]

NARRATIVE: CASE EVENT DATE: 20210101
